FAERS Safety Report 9022383 (Version 3)
Quarter: 2013Q1

REPORT INFORMATION
  Report Type: Report from Study
  Country: FR (occurrence: FR)
  Receive Date: 20130118
  Receipt Date: 20130215
  Transmission Date: 20140127
  Serious: Yes (Death, Other)
  Sender: FDA-Public Use
  Company Number: FR-MILLENNIUM PHARMACEUTICALS, INC.-2013-00456

PATIENT
  Sex: 0

DRUGS (5)
  1. VELCADE [Suspect]
     Indication: WALDENSTROM^S MACROGLOBULINAEMIA
     Dosage: 2.23 MG, UNK
     Route: 042
     Dates: start: 20100820, end: 20101216
  2. DEXAMETHASONE [Concomitant]
     Dosage: 20 MG, UNK
     Route: 048
     Dates: start: 20101001, end: 20101216
  3. CYCLOPHOSPHAMIDE [Concomitant]
     Indication: WALDENSTROM^S MACROGLOBULINAEMIA
  4. FLUDARABINE [Concomitant]
     Indication: WALDENSTROM^S MACROGLOBULINAEMIA
  5. RITUXIMAB [Concomitant]
     Indication: WALDENSTROM^S MACROGLOBULINAEMIA

REACTIONS (2)
  - Sepsis [Fatal]
  - Agranulocytosis [Unknown]
